FAERS Safety Report 16681045 (Version 1)
Quarter: 2019Q3

REPORT INFORMATION
  Report Type: Spontaneous
  Country: IE (occurrence: IE)
  Receive Date: 20190808
  Receipt Date: 20190808
  Transmission Date: 20191004
  Serious: Yes (Life-Threatening, Hospitalization, Other)
  Sender: FDA-Public Use
  Company Number: IE-TEVA-2019-IE-1089798

PATIENT
  Age: 83 Year
  Sex: Female

DRUGS (13)
  1. NITROFURANTOIN (G) [Concomitant]
  2. MOVICOL 13.8G SACHET, POWDER FOR ORAL SOLUTION [Concomitant]
  3. METOPROLOL TARTRATE (G) [Concomitant]
  4. GABAPENTIN (GENERIC) [Concomitant]
     Active Substance: GABAPENTIN
     Indication: PAIN
     Route: 048
  5. VENLAFAXINE (GENERIC) [Concomitant]
     Active Substance: VENLAFAXINE HYDROCHLORIDE
  6. MEMANTINE (G) [Concomitant]
  7. RAMIPRIL. [Suspect]
     Active Substance: RAMIPRIL
     Indication: HYPERTENSION
     Route: 048
     Dates: start: 20180423, end: 20190702
  8. ALPRAZOLAM (G) [Concomitant]
  9. QUETIAPINE (G) [Concomitant]
     Active Substance: QUETIAPINE
  10. AMLODIPINE (GENERIC) [Concomitant]
  11. ASPIRIN (GENERIC) [Concomitant]
     Active Substance: ASPIRIN
  12. ATORVASTATIN (GENERIC) [Concomitant]
     Active Substance: ATORVASTATIN
  13. LANSOPRAZOLE (GENERIC) [Concomitant]
     Active Substance: LANSOPRAZOLE

REACTIONS (2)
  - Angioedema [Recovered/Resolved]
  - Obstructive airways disorder [Recovered/Resolved]

NARRATIVE: CASE EVENT DATE: 20190702
